FAERS Safety Report 6396876-1 (Version None)
Quarter: 2009Q4

REPORT INFORMATION
  Report Type: 
  Country: None (occurrence: None)
  Receive Date: 20091012
  Receipt Date: 20090609
  Transmission Date: 20100525
  Serious: No
  Sender: FDA-Public Use
  Company Number: US-ASTRAZENECA-2009UW14695

PATIENT
  Age: 60 Year
  Sex: Female

DRUGS (5)
  1. SYMBICORT [Suspect]
     Indication: CHRONIC OBSTRUCTIVE PULMONARY DISEASE
     Route: 055
     Dates: start: 20090417
  2. BROVANA [Suspect]
     Indication: CHRONIC OBSTRUCTIVE PULMONARY DISEASE
     Dosage: 15UG/2ML
     Dates: start: 20090417
  3. DUONEB [Concomitant]
     Dates: start: 20090416
  4. AMOXICILLIN [Concomitant]
     Dates: start: 20090401
  5. ALBUTEROL SULFATE AUTOHALER [Concomitant]
     Dates: start: 20090401

REACTIONS (2)
  - DRUG INEFFECTIVE [None]
  - DYSPNOEA [None]
